FAERS Safety Report 13124054 (Version 1)
Quarter: 2017Q1

REPORT INFORMATION
  Report Type: Spontaneous
  Country: MX (occurrence: MX)
  Receive Date: 20170118
  Receipt Date: 20170118
  Transmission Date: 20170428
  Serious: Yes (Hospitalization)
  Sender: FDA-Public Use
  Company Number: MX-ACCORD-047277

PATIENT
  Age: 67 Year
  Sex: Female

DRUGS (7)
  1. ATORVASTATIN [Interacting]
     Active Substance: ATORVASTATIN
     Indication: DYSLIPIDAEMIA
     Dosage: 10 MG / DAY
  2. RALOXIFENE/RALOXIFENE HYDROCHLORIDE [Interacting]
     Active Substance: RALOXIFENE
     Indication: DEPRESSION
     Dosage: 60 MG / DAY
  3. NIFEDIPINE. [Interacting]
     Active Substance: NIFEDIPINE
     Indication: HYPERTENSION
     Dosage: 20 MG / TID
  4. LEVETIRACETAM. [Suspect]
     Active Substance: LEVETIRACETAM
     Indication: DEPRESSION
     Dosage: LEVETIRACETAM 500 MG / BID
  5. PIRACETAM [Interacting]
     Active Substance: PIRACETAM
     Indication: DEPRESSION
     Dosage: 60 MG / DAY
  6. QUETIAPINE. [Interacting]
     Active Substance: QUETIAPINE
     Indication: DEPRESSION
     Dosage: 300 MG/DAY
  7. DESVENLAFAXIN/DESVENLAFAXINSUCCINATE [Interacting]
     Active Substance: DESVENLAFAXINE
     Indication: DEPRESSION
     Dosage: 50 MG / DAY

REACTIONS (3)
  - Large intestine perforation [Recovered/Resolved]
  - Drug interaction [Unknown]
  - Colonic pseudo-obstruction [Recovered/Resolved]
